FAERS Safety Report 4906398-X (Version None)
Quarter: 2006Q1

REPORT INFORMATION
  Report Type: 
  Country: None (occurrence: None)
  Receive Date: 20060206
  Receipt Date: 20060123
  Transmission Date: 20060701
  Serious: Yes (Hospitalization)
  Sender: FDA-Public Use
  Company Number: 200510685BYL

PATIENT
  Age: 62 Year
  Sex: Female

DRUGS (2)
  1. ADALAT [Suspect]
     Indication: HYPERTENSION
     Dosage: 20 MG, ONCE, ORAL
     Route: 048
     Dates: start: 20051203
  2. ADALAT [Concomitant]

REACTIONS (2)
  - CEREBRAL INFARCTION [None]
  - CHEST DISCOMFORT [None]
